FAERS Safety Report 20415444 (Version 10)
Quarter: 2022Q3

REPORT INFORMATION
  Report Type: Report from Study
  Country: US (occurrence: US)
  Receive Date: 20220202
  Receipt Date: 20220723
  Transmission Date: 20221027
  Serious: Yes (Hospitalization)
  Sender: FDA-Public Use
  Company Number: NVSC2022US022332

PATIENT
  Age: 77 Year
  Sex: Female

DRUGS (3)
  1. ENTRESTO [Suspect]
     Active Substance: SACUBITRIL\VALSARTAN
     Indication: Product used for unknown indication
     Dosage: 1 DOSAGE FORM,BID (24/26 MG)
     Route: 048
  2. LIPITOR [Concomitant]
     Active Substance: ATORVASTATIN CALCIUM
     Indication: Product used for unknown indication
     Dosage: UNK
     Route: 065
  3. LASIX [Concomitant]
     Active Substance: FUROSEMIDE
     Indication: Product used for unknown indication
     Dosage: UNK
     Route: 065

REACTIONS (15)
  - Chest pain [Unknown]
  - Arthralgia [Unknown]
  - Discomfort [Unknown]
  - Rhinorrhoea [Unknown]
  - Upper-airway cough syndrome [Not Recovered/Not Resolved]
  - Throat clearing [Not Recovered/Not Resolved]
  - Secretion discharge [Recovering/Resolving]
  - Limb injury [Unknown]
  - Pain in extremity [Unknown]
  - Seasonal allergy [Unknown]
  - Cough [Unknown]
  - Musculoskeletal stiffness [Unknown]
  - Chronic obstructive pulmonary disease [Unknown]
  - Fall [Unknown]
  - Hypotension [Unknown]

NARRATIVE: CASE EVENT DATE: 20211201
